FAERS Safety Report 9265188 (Version 1)
Quarter: 2013Q2

REPORT INFORMATION
  Report Type: Spontaneous
  Country: US (occurrence: US)
  Receive Date: 20130501
  Receipt Date: 20130501
  Transmission Date: 20140414
  Serious: Yes (Other)
  Sender: FDA-Public Use
  Company Number: US-PFIZER INC-2013132306

PATIENT
  Age: 40 Year
  Sex: Female
  Weight: 99.77 kg

DRUGS (16)
  1. NEURONTIN [Suspect]
     Indication: CONVULSION
     Dosage: 300 MG, 3X/DAY
     Route: 048
     Dates: start: 200911
  2. NEURONTIN [Suspect]
     Dosage: 900 MG (3 CAPSULES OF 300MG ), 3X/DAY
     Route: 048
  3. KEPRRA XR [Suspect]
     Indication: CONVULSION
     Dosage: 1500 MG(3 TABLETS OF 500 MG), 1X/DAY
     Route: 048
  4. TOPAMAX [Suspect]
     Indication: CONVULSION
     Dosage: 200 MG, 2X/DAY
  5. FERROUS SULPHATE [Concomitant]
     Indication: ANAEMIA
     Dosage: 325 MG, 3X/DAY
     Route: 048
  6. SINGULAIR [Concomitant]
     Indication: ASTHMA
     Dosage: 10 MG, 1X/DAY
  7. DEPAKOTE ER [Concomitant]
     Indication: CONVULSION
     Dosage: 1000 MG (TWO TABLETS 500MG), 2X/DAY
     Route: 048
  8. NAPROXEN [Concomitant]
     Indication: ARTHRALGIA
     Dosage: 500 MG, 2X/DAY
     Route: 048
  9. CODEINE [Concomitant]
     Indication: PREMATURE MENOPAUSE
     Dosage: 0.1 MG, 1X/DAY
     Route: 048
  10. CODEINE [Concomitant]
     Indication: MENORRHAGIA
  11. DIOVAN HCT [Concomitant]
     Indication: HYPERTENSION
     Dosage: 12.5/80 MG, 1X/DAY
  12. IMITREX [Concomitant]
     Indication: MIGRAINE
     Dosage: 50 MG, AS NEEDED
  13. ADVAIR [Concomitant]
     Indication: ASTHMA
     Dosage: 1 PUFF, AS NEEDED
  14. ADVAIR [Concomitant]
     Indication: CHRONIC OBSTRUCTIVE PULMONARY DISEASE
  15. VENTOLIN [Concomitant]
     Indication: ASTHMA
     Dosage: 2 PUFFS, AS NEEDED
  16. VENTOLIN [Concomitant]
     Indication: CHRONIC OBSTRUCTIVE PULMONARY DISEASE

REACTIONS (8)
  - Fall [Unknown]
  - Joint injury [Not Recovered/Not Resolved]
  - Activities of daily living impaired [Not Recovered/Not Resolved]
  - Wheelchair user [Unknown]
  - Walking aid user [Unknown]
  - Convulsion [None]
  - Condition aggravated [None]
  - Hypertension [None]
